FAERS Safety Report 24990082 (Version 1)
Quarter: 2025Q1

REPORT INFORMATION
  Report Type: Spontaneous
  Country: FR (occurrence: None)
  Receive Date: 20250220
  Receipt Date: 20250220
  Transmission Date: 20250408
  Serious: No
  Sender: ALEXION PHARMACEUTICALS
  Company Number: FR-AstraZeneca-2010SE25168

PATIENT
  Age: 47 Year

DRUGS (2)
  1. ESOMEPRAZOLE MAGNESIUM [Suspect]
     Active Substance: ESOMEPRAZOLE MAGNESIUM
     Indication: Gastritis
     Dosage: 40 MILLIGRAM, QD
  2. EBASTINE [Concomitant]
     Active Substance: EBASTINE
     Indication: Hypersensitivity

REACTIONS (1)
  - Tinnitus [Not Recovered/Not Resolved]
